FAERS Safety Report 20851804 (Version 2)
Quarter: 2022Q2

REPORT INFORMATION
  Report Type: Report from Study
  Country: DK (occurrence: None)
  Receive Date: 20220520
  Receipt Date: 20220526
  Transmission Date: 20220721
  Serious: Yes (Hospitalization)
  Sender: FDA-Public Use
  Company Number: DK-ROCHE-3093938

PATIENT
  Age: 50 Year
  Sex: Male
  Weight: 170 kg

DRUGS (1)
  1. ATEZOLIZUMAB [Suspect]
     Active Substance: ATEZOLIZUMAB
     Indication: Metastatic carcinoma of the bladder
     Route: 041

REACTIONS (3)
  - Pyrexia [Recovered/Resolved]
  - Phlebitis infective [Recovered/Resolved]
  - Infection [Recovered/Resolved]

NARRATIVE: CASE EVENT DATE: 20220325
